FAERS Safety Report 5000182-7 (Version None)
Quarter: 2006Q2

REPORT INFORMATION
  Report Type: 
  Country: None (occurrence: None)
  Receive Date: 20060509
  Receipt Date: 20060313
  Transmission Date: 20061013
  Serious: Yes (Other)
  Sender: FDA-Public Use
  Company Number: 2006035586

PATIENT
  Age: 52 Year
  Sex: Female

DRUGS (4)
  1. LYRICA [Suspect]
     Indication: FIBROMYALGIA
     Dosage: 200 MG (UNKNOWN), ORAL
     Route: 048
     Dates: start: 20060209, end: 20060215
  2. VALORON            (TILIDINE HYDROCHLORIDE) [Concomitant]
  3. PAROXETINE HCL [Concomitant]
  4. AMITRIPTYLINE HCL [Concomitant]

REACTIONS (3)
  - CARDIOVASCULAR DISORDER [None]
  - SPEECH DISORDER [None]
  - TRANSIENT ISCHAEMIC ATTACK [None]
